FAERS Safety Report 12759082 (Version 1)
Quarter: 2016Q3

REPORT INFORMATION
  Report Type: Spontaneous
  Country: GB (occurrence: GB)
  Receive Date: 20160919
  Receipt Date: 20160919
  Transmission Date: 20161109
  Serious: Yes (Death)
  Sender: FDA-Public Use
  Company Number: GB-PFIZER INC-2016431582

PATIENT
  Sex: Male
  Weight: 95 kg

DRUGS (8)
  1. METHOTREXATE SODIUM. [Suspect]
     Active Substance: METHOTREXATE SODIUM
     Indication: RHEUMATOID ARTHRITIS
     Dosage: 20 MG, WEEKLY
     Route: 048
     Dates: start: 20141219, end: 20160505
  2. SERTRALINE [Concomitant]
     Active Substance: SERTRALINE HYDROCHLORIDE
  3. LANSOPRAZOLE. [Concomitant]
     Active Substance: LANSOPRAZOLE
  4. AMITRIPTYLINE [Concomitant]
     Active Substance: AMITRIPTYLINE
  5. TAMSULOSIN [Concomitant]
     Active Substance: TAMSULOSIN
  6. FOLIC ACID. [Concomitant]
     Active Substance: FOLIC ACID
  7. NEFOPAM [Concomitant]
     Active Substance: NEFOPAM
  8. FINASTERID [Concomitant]
     Active Substance: FINASTERIDE

REACTIONS (2)
  - Pneumonia [Fatal]
  - Immunodeficiency [Fatal]

NARRATIVE: CASE EVENT DATE: 20160505
